FAERS Safety Report 11357242 (Version 1)
Quarter: 2015Q3

REPORT INFORMATION
  Report Type: Spontaneous
  Country: US (occurrence: US)
  Receive Date: 20150803
  Receipt Date: 20150803
  Transmission Date: 20151125
  Serious: No
  Sender: FDA-Public Use
  Company Number: US-ELI_LILLY_AND_COMPANY-US201011005563

PATIENT
  Sex: Female

DRUGS (5)
  1. ZYPREXA [Suspect]
     Active Substance: OLANZAPINE
     Dosage: 20 MG, DAILY (1/D)
  2. ZYPREXA [Suspect]
     Active Substance: OLANZAPINE
     Indication: SCHIZOPHRENIA
     Dosage: 20 MG, DAILY (1/D)
  3. ZYPREXA [Suspect]
     Active Substance: OLANZAPINE
     Dosage: 20 MG, UNK
  4. NAVANE [Concomitant]
     Active Substance: THIOTHIXENE
  5. ZYPREXA [Suspect]
     Active Substance: OLANZAPINE
     Dosage: 40 MG, DAILY (1/D)

REACTIONS (4)
  - Mania [Unknown]
  - Prescribed overdose [Recovered/Resolved]
  - Drug dose omission [Unknown]
  - Hallucination [Unknown]
